FAERS Safety Report 7089215-4 (Version None)
Quarter: 2010Q4

REPORT INFORMATION
  Report Type: 
  Country: None (occurrence: None)
  Receive Date: 20101029
  Receipt Date: 20101022
  Transmission Date: 20110411
  Serious: Yes (Other)
  Sender: FDA-Public Use
  Company Number: JHP201000329

PATIENT
  Sex: Female

DRUGS (1)
  1. DANTROLENE SODIUM [Suspect]
     Dosage: 40-80 MG DAILY, INTRAVENOUS
     Route: 042

REACTIONS (1)
  - PLATELET COUNT DECREASED [None]
